FAERS Safety Report 10369275 (Version 1)
Quarter: 2014Q1

REPORT INFORMATION
  Report Type: Spontaneous
  Country: US (occurrence: None)
  Receive Date: 20140306
  Receipt Date: 20140306
  Transmission Date: 20141002
  Serious: Yes (Hospitalization)
  Sender: FDA-Public Use
  Company Number: 163-21880-13090796

PATIENT
  Age: 53 Year
  Sex: Male
  Weight: 127.01 kg

DRUGS (11)
  1. REVLIMID (LENALIDOMIDE) (25 MILLIGRAM, CAPSULES) [Suspect]
     Indication: PLASMA CELL MYELOMA
     Route: 048
     Dates: start: 201006
  2. CYTOXAN (CYCLOPHOSPHAMIDE) [Concomitant]
  3. ZOLPIDEM TARTRATE (ZOLPIDEM TARTRATE) (UNKNOWN) [Concomitant]
  4. DEXAMETHASONE (DEXAMETHASONE) (UNKNOWN) [Concomitant]
  5. LYRICA (PREGABALIN) (CAPSULES) [Concomitant]
  6. LANTUS (INSULIN GLARGINE) [Concomitant]
  7. METFORMIN HCL (METFORMIN HYDROCHLORIDE) (UNKNOWN) [Concomitant]
  8. OMEPRAZOLE (OMEPRAZOLE) (UNKNOWN) [Concomitant]
  9. GLIMEPIRIDE (GLIMEPIRIDE) (TABLETS) [Concomitant]
  10. PROCHLORPERAZINE MALEATE (PROCHLORPERAZINE MALEATE) (UNKNOWN) [Concomitant]
  11. NOVOLOG FLEXPEN (INSULIN ASPART) (UNKNOWN) [Concomitant]

REACTIONS (3)
  - Pulmonary embolism [None]
  - Urticaria [None]
  - Pyrexia [None]
